FAERS Safety Report 9593232 (Version 1)
Quarter: 2013Q4

REPORT INFORMATION
  Report Type: Spontaneous
  Country: AU (occurrence: AU)
  Receive Date: 20131004
  Receipt Date: 20131004
  Transmission Date: 20140711
  Serious: Yes (Other)
  Sender: FDA-Public Use
  Company Number: PHHY2013AU109557

PATIENT
  Sex: Male

DRUGS (4)
  1. FLUOXETINE [Suspect]
  2. BUPROPION [Suspect]
  3. TIZANIDINE [Suspect]
  4. TAPENTADOL [Suspect]

REACTIONS (5)
  - Serotonin syndrome [Unknown]
  - Aggression [Unknown]
  - Hypertension [Unknown]
  - Depersonalisation [Unknown]
  - Chills [Unknown]
